FAERS Safety Report 6134282-5 (Version None)
Quarter: 2009Q1

REPORT INFORMATION
  Report Type: 
  Country: None (occurrence: None)
  Receive Date: 20090325
  Receipt Date: 20090313
  Transmission Date: 20090719
  Serious: Yes (Death, Hospitalization, Other)
  Sender: FDA-Public Use
  Company Number: 2007-02195

PATIENT
  Age: 55 Year
  Sex: Female
  Weight: 41 kg

DRUGS (15)
  1. VELCADE [Suspect]
     Indication: MULTIPLE MYELOMA
     Dosage: 1.60 MG, INTRAVENOUS
     Route: 042
     Dates: start: 20070618, end: 20070730
  2. DEXAMETHASONE TAB [Suspect]
     Indication: MULTIPLE MYELOMA
     Dosage: 20.00 MG
     Dates: start: 20070627, end: 20070730
  3. FUROSEMIDE [Concomitant]
  4. ALLOPURINOL [Concomitant]
  5. FAMOTIDINE [Concomitant]
  6. VORICONAZOLE (VORICONAZOLE) [Concomitant]
  7. SULFAMETHOXAZOLE AND TRIMETHOPRIM [Concomitant]
  8. FUNGUARD [Concomitant]
  9. SODIUM BICARBONATE [Concomitant]
  10. SENNOSIDE [Concomitant]
  11. LAXOBERON (SODIUM PICOSULFATE) [Concomitant]
  12. LECICARBON (SODIUM BICARBONATE, LECITHIN, SODIUM PHOSPHATE MONOBASIC ( [Concomitant]
  13. PANTETHINE (PANTETHINE) [Concomitant]
  14. PLATELETS [Concomitant]
  15. RABEPRAZOLE SODIUM [Concomitant]

REACTIONS (13)
  - ANAEMIA [None]
  - BRONCHOPULMONARY ASPERGILLOSIS [None]
  - CHEST DISCOMFORT [None]
  - CONSTIPATION [None]
  - DISEASE PROGRESSION [None]
  - HYPERURICAEMIA [None]
  - HYPOCHLORAEMIA [None]
  - HYPONATRAEMIA [None]
  - ILEUS PARALYTIC [None]
  - NEUROPATHY PERIPHERAL [None]
  - PALPITATIONS [None]
  - PLATELET COUNT DECREASED [None]
  - TUMOUR LYSIS SYNDROME [None]
